FAERS Safety Report 12945373 (Version 1)
Quarter: 2016Q4

REPORT INFORMATION
  Report Type: Spontaneous
  Country: CN (occurrence: CN)
  Receive Date: 20161116
  Receipt Date: 20161116
  Transmission Date: 20170207
  Serious: Yes (Other)
  Sender: FDA-Public Use
  Company Number: CN-BRISTOL-MYERS SQUIBB COMPANY-BMS-2016-096052

PATIENT
  Age: 52 Year
  Sex: Female
  Weight: 49 kg

DRUGS (2)
  1. STOCRIN [Suspect]
     Active Substance: EFAVIRENZ
     Indication: ACQUIRED IMMUNODEFICIENCY SYNDROME
     Route: 065
  2. STOCRIN [Suspect]
     Active Substance: EFAVIRENZ
     Indication: VIRAL INFECTION
     Dosage: 600 MG, QD
     Route: 048
     Dates: start: 20160128, end: 20160927

REACTIONS (1)
  - Liver disorder [Unknown]

NARRATIVE: CASE EVENT DATE: 20160926
